FAERS Safety Report 20821794 (Version 1)
Quarter: 2022Q2

REPORT INFORMATION
  Report Type: Spontaneous
  Country: DE (occurrence: DE)
  Receive Date: 20220512
  Receipt Date: 20220512
  Transmission Date: 20220721
  Serious: Yes (Other)
  Sender: FDA-Public Use
  Company Number: None

PATIENT

DRUGS (1)
  1. CYTOTEC [Suspect]
     Active Substance: MISOPROSTOL
     Indication: Labour induction
     Dosage: UNK
     Route: 064
     Dates: start: 20111209, end: 20111209

REACTIONS (8)
  - Maternal exposure during delivery [Unknown]
  - Foetal distress syndrome [Unknown]
  - Haemorrhage foetal [Unknown]
  - Pulmonary haemorrhage [Unknown]
  - Cerebral palsy [Unknown]
  - Hypothermia [Unknown]
  - Dyskinesia [Unknown]
  - Hypotonia [Unknown]

NARRATIVE: CASE EVENT DATE: 20111210
